FAERS Safety Report 9233238 (Version 1)
Quarter: 2013Q2

REPORT INFORMATION
  Report Type: Spontaneous
  Country: US (occurrence: US)
  Receive Date: 20130416
  Receipt Date: 20130416
  Transmission Date: 20140414
  Serious: Yes (Other)
  Sender: FDA-Public Use
  Company Number: US-BANPHARM-20120210

PATIENT
  Age: 52 Year
  Sex: Female
  Weight: 95.24 kg

DRUGS (4)
  1. NAPROXEN SODIUM CAPSULES 220 MG [Suspect]
     Indication: NECK PAIN
     Dosage: 440 MG, BID,
     Route: 048
     Dates: start: 20120912, end: 20120918
  2. METRONIDAZOLE [Concomitant]
     Dates: start: 20120916, end: 20120922
  3. LIPID MODIFYING AGENTS [Concomitant]
     Dates: start: 2010
  4. ANTIHYPERTENSIVES [Concomitant]
     Dates: start: 2010

REACTIONS (1)
  - Haematochezia [Not Recovered/Not Resolved]
